FAERS Safety Report 10953011 (Version 1)
Quarter: 2015Q1

REPORT INFORMATION
  Report Type: Spontaneous
  Country: US (occurrence: None)
  Receive Date: 20150324
  Receipt Date: 20150324
  Transmission Date: 20150721
  Serious: Yes (Life-Threatening, Hospitalization, Disabling)
  Sender: FDA-Public Use
  Company Number: None

PATIENT
  Age: 48 Year
  Sex: Female
  Weight: 86.18 kg

DRUGS (7)
  1. SYNTHROID [Concomitant]
     Active Substance: LEVOTHYROXINE SODIUM
  2. TIZAMIDINE [Concomitant]
  3. CYMBALTA [Suspect]
     Active Substance: DULOXETINE HYDROCHLORIDE
     Indication: FIBROMYALGIA
     Dosage: 1 PILL 1X A DAY MOUTH
     Route: 048
     Dates: start: 201010, end: 201304
  4. METFORMIN [Concomitant]
     Active Substance: METFORMIN HYDROCHLORIDE
  5. GABAPENTIN. [Concomitant]
     Active Substance: GABAPENTIN
  6. OMEPRAZOLE. [Concomitant]
     Active Substance: OMEPRAZOLE
  7. ATORVASTATINE [Concomitant]
     Active Substance: ATORVASTATIN

REACTIONS (8)
  - Cerebrovascular accident [None]
  - Blindness [None]
  - Visual field defect [None]
  - Hallucination [None]
  - Vomiting [None]
  - Migraine [None]
  - Reversible cerebral vasoconstriction syndrome [None]
  - Headache [None]

NARRATIVE: CASE EVENT DATE: 20130325
